FAERS Safety Report 15942126 (Version 2)
Quarter: 2019Q1

REPORT INFORMATION
  Report Type: Spontaneous
  Country: DE (occurrence: DE)
  Receive Date: 20190209
  Receipt Date: 20190329
  Transmission Date: 20190417
  Serious: Yes (Other)
  Sender: FDA-Public Use
  Company Number: DE-AMGEN-DEUSP2019017511

PATIENT
  Age: 37 Year
  Sex: Female
  Weight: 68 kg

DRUGS (3)
  1. CALCIUM [Concomitant]
     Active Substance: CALCIUM
     Dosage: 1 G, UNK
     Route: 048
     Dates: start: 201403
  2. VITAMIN D [Concomitant]
     Active Substance: CHOLECALCIFEROL
     Dosage: 20 IU, UNK
     Route: 048
     Dates: start: 201403
  3. XGEVA [Suspect]
     Active Substance: DENOSUMAB
     Indication: BONE GIANT CELL TUMOUR
     Dosage: 120 MG, UNK
     Route: 058
     Dates: start: 201403

REACTIONS (2)
  - Stress fracture [Not Recovered/Not Resolved]
  - Fracture delayed union [Not Recovered/Not Resolved]

NARRATIVE: CASE EVENT DATE: 20190116
